FAERS Safety Report 17203548 (Version 1)
Quarter: 2019Q4

REPORT INFORMATION
  Report Type: Spontaneous
  Country: US (occurrence: US)
  Receive Date: 20191226
  Receipt Date: 20191226
  Transmission Date: 20200122
  Serious: No
  Sender: FDA-Public Use
  Company Number: US-CATALYST PHARMACEUTICALS, INC-2019CAT00419

PATIENT
  Sex: Female
  Weight: 72.56 kg

DRUGS (4)
  1. UNSPECIFIED MEDICATIONS [Concomitant]
     Active Substance: UNSPECIFIED INGREDIENT
  2. FIRDAPSE [Suspect]
     Active Substance: AMIFAMPRIDINE
     Dosage: 15 MG ALTERNATING WITH 5 MG EVERY 2 HOURS UNTIL 80 MG TOTAL REACHED
     Route: 048
     Dates: start: 2019
  3. FIRDAPSE [Suspect]
     Active Substance: AMIFAMPRIDINE
     Dosage: 5 MG ALTERNATING WITH 15 MG EVERY 2 HOURS UNTIL 80 MG TOTAL REACHED
     Route: 048
     Dates: start: 2019
  4. FIRDAPSE [Suspect]
     Active Substance: AMIFAMPRIDINE
     Indication: MYASTHENIC SYNDROME
     Dosage: 60 MG DAILY
     Route: 048
     Dates: start: 20190203, end: 2019

REACTIONS (5)
  - Cerebellar ataxia [Recovered/Resolved]
  - Paraesthesia [Recovered/Resolved]
  - Paraesthesia oral [Recovered/Resolved]
  - Drug ineffective [Recovered/Resolved]
  - Asthenia [Recovered/Resolved]

NARRATIVE: CASE EVENT DATE: 2019
